FAERS Safety Report 10722140 (Version 2)
Quarter: 2015Q2

REPORT INFORMATION
  Report Type: Spontaneous
  Country: SE (occurrence: SE)
  Receive Date: 20150119
  Receipt Date: 20150417
  Transmission Date: 20150821
  Serious: Yes (Life-Threatening, Other)
  Sender: FDA-Public Use
  Company Number: SE-MERCK-1501SWE005756

PATIENT
  Age: 75 Year
  Sex: Male

DRUGS (6)
  1. MIRTAZAPINE. [Suspect]
     Active Substance: MIRTAZAPINE
     Route: 048
  2. ALVEDON [Suspect]
     Active Substance: ACETAMINOPHEN
     Route: 048
  3. HEMINEVRIN [Suspect]
     Active Substance: CLOMETHIAZOLE
     Route: 048
  4. SOBRIL [Suspect]
     Active Substance: OXAZEPAM
     Route: 048
  5. DOLCONTIN (MORPHINE SULFATE) [Suspect]
     Active Substance: MORPHINE SULFATE
     Route: 048
  6. ZOPICLONE [Suspect]
     Active Substance: ZOPICLONE
     Route: 048

REACTIONS (2)
  - Toxicity to various agents [Recovered/Resolved]
  - Suicidal ideation [Recovered/Resolved]
